FAERS Safety Report 6931876-1 (Version None)
Quarter: 2010Q3

REPORT INFORMATION
  Report Type: 
  Country: None (occurrence: None)
  Receive Date: 20100819
  Receipt Date: 20100817
  Transmission Date: 20110219
  Serious: Yes (Hospitalization)
  Sender: FDA-Public Use
  Company Number: ES-SANOFI-AVENTIS-2010SA047734

PATIENT
  Age: 80 Year
  Sex: Female

DRUGS (2)
  1. CLEXANE [Suspect]
     Indication: ANTICOAGULANT THERAPY
     Route: 058
  2. HEPARIN SODIUM [Suspect]
     Indication: ANTICOAGULANT THERAPY
     Route: 042

REACTIONS (1)
  - ECZEMA [None]
